FAERS Safety Report 9104883 (Version 1)
Quarter: 2013Q1

REPORT INFORMATION
  Report Type: Spontaneous
  Country: US (occurrence: US)
  Receive Date: 20130220
  Receipt Date: 20130220
  Transmission Date: 20140127
  Serious: No
  Sender: FDA-Public Use
  Company Number: US-BAYER-2013-020166

PATIENT
  Age: 41 Year
  Sex: Female
  Weight: 79.37 kg

DRUGS (8)
  1. YAZ [Suspect]
     Dosage: UNK
     Dates: start: 200612, end: 200810
  2. YAZ [Suspect]
     Dosage: UNK
     Dates: start: 200812, end: 20090630
  3. IBUPROFEN [Concomitant]
     Indication: PAIN
     Dosage: UNK
     Dates: start: 2009
  4. ANTIBIOTICS [Concomitant]
  5. SINGULAIR [Concomitant]
     Indication: MULTIPLE ALLERGIES
     Dosage: UNK
     Dates: start: 2008
  6. FLUOXETINE [Concomitant]
     Indication: DEPRESSION
     Dosage: UNK
     Dates: start: 2008
  7. STEROIDS [Concomitant]
     Indication: RASH
     Dosage: UNK
     Dates: start: 200906
  8. AMOXYL [Concomitant]

REACTIONS (4)
  - Thrombophlebitis superficial [Recovered/Resolved]
  - Oedema peripheral [Recovered/Resolved]
  - Tenderness [Recovered/Resolved]
  - Hypersensitivity [None]
